FAERS Safety Report 20053360 (Version 2)
Quarter: 2021Q4

REPORT INFORMATION
  Report Type: Report from Study
  Country: EG (occurrence: EG)
  Receive Date: 20211110
  Receipt Date: 20211119
  Transmission Date: 20220303
  Serious: Yes (Hospitalization, Other)
  Sender: FDA-Public Use
  Company Number: EG-NOVARTISPH-NVSC2021EG248452

PATIENT
  Age: 42 Year
  Sex: Female

DRUGS (10)
  1. ENTRESTO [Suspect]
     Active Substance: SACUBITRIL\VALSARTAN
     Indication: Cardiac failure
     Dosage: 1 DF, BID(50 MG)
     Route: 048
     Dates: start: 202010, end: 202106
  2. ENTRESTO [Suspect]
     Active Substance: SACUBITRIL\VALSARTAN
     Dosage: 0.5 DF, BID(100 MG)
     Route: 048
     Dates: start: 202106, end: 202108
  3. ENTRESTO [Suspect]
     Active Substance: SACUBITRIL\VALSARTAN
     Dosage: 0.5 DF, BID(50 MG)
     Route: 048
     Dates: start: 202109
  4. PLAVIX [Concomitant]
     Active Substance: CLOPIDOGREL BISULFATE
     Indication: Prophylaxis
     Dosage: 1 DF, QD (DAILY AFTER BREAKFAST)
     Route: 065
     Dates: start: 202103
  5. TICAGRELOR [Concomitant]
     Active Substance: TICAGRELOR
     Indication: Prophylaxis
     Dosage: 1 DF, BID
     Route: 065
     Dates: start: 202009, end: 202103
  6. DAPAGLIFLOZIN [Concomitant]
     Active Substance: DAPAGLIFLOZIN
     Indication: Diabetes mellitus
     Dosage: UNK, QD (ONE TABLET DAILY BEORE BREAKFAST)
     Route: 065
     Dates: start: 202012
  7. BISOPROLOL FUMARATE [Concomitant]
     Active Substance: BISOPROLOL FUMARATE
     Indication: Cardiac failure
     Dosage: 1 DF, QD
     Route: 065
     Dates: start: 202009, end: 202011
  8. BISOPROLOL FUMARATE [Concomitant]
     Active Substance: BISOPROLOL FUMARATE
     Dosage: UNK, QD (ONE TABLET DAILY)
     Route: 065
     Dates: start: 202108
  9. BENFOTIAMINE\CYANOCOBALAMIN\PYRIDOXINE HYDROCHLORIDE [Concomitant]
     Active Substance: BENFOTIAMINE\CYANOCOBALAMIN\PYRIDOXINE HYDROCHLORIDE
     Indication: Neuritis
     Dosage: 1 DF, QD
     Route: 065
     Dates: start: 202106
  10. ASPIRIN [Concomitant]
     Active Substance: ASPIRIN
     Indication: Prophylaxis
     Dosage: 1 DF, QD
     Route: 065
     Dates: start: 202009

REACTIONS (12)
  - Nasopharyngitis [Recovered/Resolved]
  - Balance disorder [Recovered/Resolved]
  - Blood pressure systolic decreased [Recovered/Resolved]
  - Fatigue [Recovered/Resolved]
  - Type 2 diabetes mellitus [Not Recovered/Not Resolved]
  - Heavy menstrual bleeding [Recovered/Resolved]
  - Decreased immune responsiveness [Recovered/Resolved]
  - Pleurisy [Recovered/Resolved]
  - Dyspnoea [Recovered/Resolved]
  - Bone pain [Recovered/Resolved]
  - Dizziness [Unknown]
  - Wrong technique in product usage process [Unknown]

NARRATIVE: CASE EVENT DATE: 20201001
